FAERS Safety Report 9257135 (Version 1)
Quarter: 2013Q2

REPORT INFORMATION
  Report Type: Spontaneous
  Country: CA (occurrence: CA)
  Receive Date: 20130426
  Receipt Date: 20130426
  Transmission Date: 20140414
  Serious: Yes (Other)
  Sender: FDA-Public Use
  Company Number: CA-ABBOTT-13X-028-1058703-00

PATIENT
  Age: 18 Year
  Sex: Female
  Weight: 68.1 kg

DRUGS (2)
  1. BIAXIN XL [Suspect]
     Indication: NASOPHARYNGITIS
     Route: 048
     Dates: start: 20120915, end: 20120919
  2. BIAXIN XL [Suspect]
     Indication: COUGH

REACTIONS (8)
  - Arthralgia [Unknown]
  - Serum sickness [Not Recovered/Not Resolved]
  - Urticaria [Unknown]
  - Pruritus [Unknown]
  - Pain in extremity [Unknown]
  - Tendon injury [Unknown]
  - Pain [Unknown]
  - Dry skin [Unknown]
